FAERS Safety Report 7522882-7 (Version None)
Quarter: 2011Q2

REPORT INFORMATION
  Report Type: 
  Country: None (occurrence: None)
  Receive Date: 20110603
  Receipt Date: 20110523
  Transmission Date: 20111010
  Serious: Yes (Other)
  Sender: FDA-Public Use
  Company Number: PHHY2010US47253

PATIENT
  Sex: Female
  Weight: 59.864 kg

DRUGS (3)
  1. EXJADE [Suspect]
     Indication: MYELODYSPLASTIC SYNDROME
     Dosage: 150 MG, QD
     Route: 048
     Dates: start: 20100901
  2. EXJADE [Suspect]
     Dosage: 1500 MG, DAILY
     Route: 048
     Dates: end: 20110101
  3. REVLIMID [Suspect]
     Dosage: EVERY OTHER DAY
     Route: 048
     Dates: start: 20100715, end: 20100729

REACTIONS (4)
  - DIARRHOEA [None]
  - DRUG INEFFECTIVE [None]
  - GLOMERULAR FILTRATION RATE DECREASED [None]
  - FREQUENT BOWEL MOVEMENTS [None]
